FAERS Safety Report 9385792 (Version 5)
Quarter: 2014Q2

REPORT INFORMATION
  Report Type: Spontaneous
  Country: US (occurrence: US)
  Receive Date: 20130705
  Receipt Date: 20140411
  Transmission Date: 20141212
  Serious: Yes (Hospitalization, Other)
  Sender: FDA-Public Use
  Company Number: US-009507513-1307USA001871

PATIENT
  Sex: Female

DRUGS (5)
  1. FOSAMAX [Suspect]
     Indication: OSTEOPOROSIS
     Dosage: 70 MG, UNK
     Route: 048
     Dates: start: 200401, end: 200802
  2. ALENDRONATE SODIUM [Suspect]
     Indication: OSTEOPOROSIS
     Dosage: 70 MG, UNK
     Route: 048
     Dates: start: 200802
  3. CENTRUM SILVER [Concomitant]
     Dosage: 1 DF, QD
     Dates: start: 1998
  4. VITAMIN D (UNSPECIFIED) [Concomitant]
     Dosage: 50000 IU, QW
     Dates: start: 1998
  5. CALCIUM (UNSPECIFIED) [Concomitant]
     Dosage: 600 MG, UNK
     Dates: start: 1998

REACTIONS (35)
  - Femur fracture [Recovering/Resolving]
  - Intramedullary rod insertion [Unknown]
  - Spinal compression fracture [Unknown]
  - Removal of internal fixation [Unknown]
  - Post procedural haemorrhage [Unknown]
  - Suicide attempt [Unknown]
  - Renal infarct [Unknown]
  - Rib fracture [Unknown]
  - Constipation [Recovered/Resolved]
  - Traumatic haematoma [Unknown]
  - Spinal disorder [Unknown]
  - Spinal osteoarthritis [Unknown]
  - Atelectasis [Unknown]
  - Sleep apnoea syndrome [Unknown]
  - Hypertension [Unknown]
  - Cholelithiasis [Unknown]
  - Leukocytosis [Unknown]
  - Rectal prolapse [Unknown]
  - Proteinuria [Unknown]
  - Tendonitis [Unknown]
  - Osteopenia [Unknown]
  - Mouth injury [Unknown]
  - Face injury [Unknown]
  - Fall [Unknown]
  - Foot fracture [Recovering/Resolving]
  - Anxiety [Unknown]
  - Cough [Unknown]
  - Chest pain [Unknown]
  - Fall [Unknown]
  - Neuropathic arthropathy [Unknown]
  - Hip arthroplasty [Unknown]
  - Urine ketone body present [Unknown]
  - Pulmonary arterial pressure increased [Unknown]
  - Osteosclerosis [Unknown]
  - Back pain [Not Recovered/Not Resolved]
